FAERS Safety Report 11675579 (Version 1)
Quarter: 2015Q4

REPORT INFORMATION
  Report Type: Spontaneous
  Country: US (occurrence: US)
  Receive Date: 20151027
  Receipt Date: 20151027
  Transmission Date: 20160304
  Serious: No
  Sender: FDA-Public Use
  Company Number: US-ELI_LILLY_AND_COMPANY-US201009001764

PATIENT
  Sex: Female

DRUGS (2)
  1. FORTEO [Suspect]
     Active Substance: TERIPARATIDE
     Dosage: 20 UG, DAILY (1/D)
  2. ENBREL [Concomitant]
     Active Substance: ETANERCEPT

REACTIONS (4)
  - Musculoskeletal discomfort [Unknown]
  - Fatigue [Unknown]
  - Pain [Unknown]
  - Psoriatic arthropathy [Unknown]
